FAERS Safety Report 9118580 (Version 1)
Quarter: 2013Q1

REPORT INFORMATION
  Report Type: Spontaneous
  Country: US (occurrence: US)
  Receive Date: 20130219
  Receipt Date: 20130219
  Transmission Date: 20140127
  Serious: No
  Sender: FDA-Public Use
  Company Number: US-BRISTOL-MYERS SQUIBB COMPANY-17170119

PATIENT
  Age: 57 Year
  Sex: Female
  Weight: 79.36 kg

DRUGS (6)
  1. ABATACEPT SUBQ INJECTION 125MG/ML [Suspect]
     Dosage: 1DF=125MG/ML
     Route: 058
  2. EFFEXOR [Concomitant]
     Dosage: TABS
  3. AMBIEN [Concomitant]
     Dosage: 5MG
  4. SYNTHROID [Concomitant]
     Dosage: TABS
  5. TRAMADOL HCL [Concomitant]
     Dosage: TABS
  6. METFORMIN HCL TABS 500MG [Concomitant]

REACTIONS (4)
  - Fatigue [Unknown]
  - Muscle spasms [Unknown]
  - Musculoskeletal pain [Unknown]
  - Injection site swelling [Unknown]
